FAERS Safety Report 13966923 (Version 2)
Quarter: 2017Q3

REPORT INFORMATION
  Report Type: Spontaneous
  Country: MX (occurrence: MX)
  Receive Date: 20170914
  Receipt Date: 20170919
  Transmission Date: 20171128
  Serious: Yes (Hospitalization, Other)
  Sender: FDA-Public Use
  Company Number: MX-HORIZON-ACT-0258-2017

PATIENT
  Age: 3 Year
  Sex: Male
  Weight: 8 kg

DRUGS (3)
  1. ITRACONAZOLE. [Concomitant]
     Active Substance: ITRACONAZOLE
     Indication: PROPHYLAXIS
     Route: 048
  2. IMUKIN [Suspect]
     Active Substance: INTERFERON GAMMA
     Indication: CHRONIC GRANULOMATOUS DISEASE
     Dosage: 10 ?G ONCE EVERY DAY
     Route: 058
     Dates: start: 20170517
  3. TRIMETHOPRIM. [Concomitant]
     Active Substance: TRIMETHOPRIM
     Indication: PROPHYLAXIS
     Route: 048

REACTIONS (2)
  - Abdominal sepsis [Recovered/Resolved]
  - Off label use [Unknown]

NARRATIVE: CASE EVENT DATE: 20170716
